FAERS Safety Report 13031265 (Version 2)
Quarter: 2017Q1

REPORT INFORMATION
  Report Type: Spontaneous
  Country: US (occurrence: US)
  Receive Date: 20161215
  Receipt Date: 20170127
  Transmission Date: 20170428
  Serious: Yes (Other)
  Sender: FDA-Public Use
  Company Number: US-BAYER-2016-233685

PATIENT
  Age: 29 Year
  Sex: Female
  Weight: 68.03 kg

DRUGS (1)
  1. SKYLA [Suspect]
     Active Substance: LEVONORGESTREL
     Indication: CONTRACEPTION
     Dosage: 14 MCG/24HR, CONT
     Route: 015
     Dates: start: 201603, end: 20161207

REACTIONS (6)
  - Pregnancy with contraceptive device [None]
  - Weight increased [None]
  - Nausea [None]
  - Drug ineffective [None]
  - Vaginal haemorrhage [None]
  - Breast tenderness [None]

NARRATIVE: CASE EVENT DATE: 2016
